FAERS Safety Report 23630569 (Version 3)
Quarter: 2024Q2

REPORT INFORMATION
  Report Type: Spontaneous
  Country: AU (occurrence: AU)
  Receive Date: 20240314
  Receipt Date: 20240416
  Transmission Date: 20240715
  Serious: Yes (Other)
  Sender: FDA-Public Use
  Company Number: AU-SUN PHARMACEUTICAL INDUSTRIES LTD-2024R1-435549

PATIENT
  Age: 55 Year
  Sex: Female

DRUGS (2)
  1. CLOPIDOGREL [Suspect]
     Active Substance: CLOPIDOGREL BISULFATE
     Indication: Myocardial ischaemia
     Dosage: UNK
     Route: 065
  2. QUININE [Suspect]
     Active Substance: QUININE
     Indication: Muscle spasms
     Dosage: UNK
     Route: 065

REACTIONS (1)
  - Thrombotic microangiopathy [Recovered/Resolved]
